FAERS Safety Report 14693297 (Version 1)
Quarter: 2018Q1

REPORT INFORMATION
  Report Type: Spontaneous
  Country: US (occurrence: US)
  Receive Date: 20180329
  Receipt Date: 20180329
  Transmission Date: 20180509
  Serious: Yes (Other)
  Sender: FDA-Public Use
  Company Number: US-JNJFOC-20180324612

PATIENT
  Age: 15 Month
  Sex: Female
  Weight: 9.98 kg

DRUGS (1)
  1. DESITIN RAPID RELIEF CREAMY DIAPER RASH [Suspect]
     Active Substance: ZINC OXIDE
     Indication: GENITAL RASH
     Dosage: DIME-SIZED AMOUNT/2 OZ/TWO TIMES PER DAY OR AS OFTEN AS NEEDED
     Route: 061
     Dates: start: 20180222, end: 20180225

REACTIONS (7)
  - Urinary retention [Not Recovered/Not Resolved]
  - Application site irritation [None]
  - Vulvovaginal erythema [Not Recovered/Not Resolved]
  - Vulvovaginal discomfort [Not Recovered/Not Resolved]
  - Complication of device insertion [None]
  - Vaginal disorder [Not Recovered/Not Resolved]
  - Application site erythema [None]

NARRATIVE: CASE EVENT DATE: 20180226
